FAERS Safety Report 6356899-5 (Version None)
Quarter: 2009Q3

REPORT INFORMATION
  Report Type: 
  Country: None (occurrence: None)
  Receive Date: 20090910
  Receipt Date: 20090910
  Transmission Date: 20100115
  Serious: Yes (Hospitalization)
  Sender: FDA-Public Use
  Company Number: None

PATIENT
  Age: 47 Year
  Sex: Female
  Weight: 136 kg

DRUGS (1)
  1. ACYCLOVIR [Suspect]
     Indication: HERPES ZOSTER
     Dosage: 1360MG EVERY 8 HOURS IV BOLUS
     Route: 040
     Dates: start: 20090622, end: 20090625

REACTIONS (2)
  - HERPES ZOSTER DISSEMINATED [None]
  - NEUROPATHY PERIPHERAL [None]
